FAERS Safety Report 8792078 (Version 2)
Quarter: 2012Q4

REPORT INFORMATION
  Report Type: 
  Country: DE (occurrence: DE)
  Receive Date: 20120918
  Receipt Date: 20121119
  Transmission Date: 20130627
  Serious: Yes (Life-Threatening, Hospitalization, Other)
  Sender: FDA-Public Use
  Company Number: DE-ASTRAZENECA-2012SE72025

PATIENT
  Sex: Female

DRUGS (3)
  1. SEROQUEL [Suspect]
     Indication: BIPOLAR DISORDER
     Route: 048
  2. SEROQUEL [Suspect]
     Indication: BIPOLAR DISORDER
     Route: 048
  3. SEROQUEL [Suspect]
     Indication: BIPOLAR DISORDER
     Dosage: 51000 MG, 170 TABLETS OF 300 MG SINGLE ADMINISTRATION
     Route: 048

REACTIONS (16)
  - Overdose [Recovered/Resolved]
  - Suicide attempt [Unknown]
  - Ventricular tachycardia [Recovered/Resolved]
  - Pneumonia aspiration [Recovered/Resolved]
  - Eye disorder [Not Recovered/Not Resolved]
  - Wrist fracture [Recovering/Resolving]
  - Amnesia [Recovering/Resolving]
  - Coma [Recovered/Resolved]
  - Fall [Unknown]
  - Anxiety [Unknown]
  - Prerenal failure [Unknown]
  - Somnolence [Recovered/Resolved]
  - Hypotension [Recovered/Resolved]
  - Convulsion [Recovered/Resolved]
  - Oedema peripheral [Recovered/Resolved]
  - Inflammation [Unknown]
